FAERS Safety Report 20549344 (Version 1)
Quarter: 2022Q1

REPORT INFORMATION
  Report Type: Spontaneous
  Country: US (occurrence: US)
  Receive Date: 20220303
  Receipt Date: 20220303
  Transmission Date: 20220424
  Serious: No
  Sender: FDA-Public Use
  Company Number: US-ALLERGAN-2132447US

PATIENT
  Age: 60 Year
  Sex: Female

DRUGS (1)
  1. RESTASIS [Suspect]
     Active Substance: CYCLOSPORINE
     Indication: Dry eye
     Dosage: UNK UNK, BID
     Route: 047
     Dates: start: 202008

REACTIONS (3)
  - Dyspnoea [Unknown]
  - Eye irritation [Recovering/Resolving]
  - Ocular discomfort [Recovering/Resolving]

NARRATIVE: CASE EVENT DATE: 20200801
